FAERS Safety Report 16370006 (Version 1)
Quarter: 2019Q2

REPORT INFORMATION
  Report Type: Spontaneous
  Country: US (occurrence: US)
  Receive Date: 20190530
  Receipt Date: 20190530
  Transmission Date: 20190711
  Serious: Yes (Other)
  Sender: FDA-Public Use
  Company Number: US-SUN PHARMACEUTICAL INDUSTRIES LTD-2019R1-203841

PATIENT
  Age: 65 Year
  Sex: Male

DRUGS (3)
  1. BUDESONIDE. [Suspect]
     Active Substance: BUDESONIDE
     Indication: IMMUNE SYSTEM DISORDER
     Route: 065
  2. PREDNISONE. [Suspect]
     Active Substance: PREDNISONE
     Indication: IMMUNE SYSTEM DISORDER
     Dosage: 20 MILLIGRAM, DAILY
     Route: 048
  3. METHYLPREDNISOLONE. [Suspect]
     Active Substance: METHYLPREDNISOLONE
     Indication: IMMUNE SYSTEM DISORDER
     Route: 042

REACTIONS (5)
  - Oral candidiasis [Recovered/Resolved]
  - Clostridium difficile infection [Recovered/Resolved]
  - Drug dependence [Unknown]
  - Treatment failure [Unknown]
  - Disease recurrence [Unknown]
